FAERS Safety Report 10034044 (Version 1)
Quarter: 2014Q1

REPORT INFORMATION
  Report Type: Spontaneous
  Country: NL (occurrence: None)
  Receive Date: 20140320
  Receipt Date: 20140320
  Transmission Date: 20141002
  Serious: Yes (Other)
  Sender: FDA-Public Use
  Company Number: FK201400900

PATIENT
  Sex: 0

DRUGS (15)
  1. PROPOFOL [Suspect]
     Indication: SEDATION
     Route: 042
     Dates: start: 20140227
  2. FENTANYL (FENTANYL) (FENTANYL) [Concomitant]
  3. IPRATROPIUM (IPRATROPIUM) (IPRATROPIUM) [Concomitant]
  4. ACETYLCYSTEINE (ACETYLCYSTEINE) (ACETYLCYSTEINE) [Concomitant]
  5. ACETYLSALICYLIC ACID (ACETYLSALICYLIC ACID) (ACETYLSALICYLIC ACID) [Concomitant]
  6. VECURONIUM (VECURONIUM) (VECURONIUM) [Concomitant]
  7. DOMPERIDON (DOMPERIDONE) (DOMPERIDONE) [Concomitant]
  8. BRILIQUE (TICAGRELOR) (TICAGRELOR) [Concomitant]
  9. MIDAZOLAM (MIDAZOLAM) (MIDAZOLAM) [Concomitant]
  10. NOREPINEPHRINE (NOREPINEPHRINE (NORPINEPHRINE) [Concomitant]
  11. ERYTHROMYCINE (ERYTHROMYCIN) (ERYTHROMYCIN) [Concomitant]
  12. CEFOTAXIM (CEFOTAXIME SODIUM) (CEFOTAXIME SODIUM) [Concomitant]
  13. HEPARIN (HEPARIN) (HEPARIN) [Concomitant]
  14. AMLODIPINE (AMLODPINE) (AMLODIPINE) [Concomitant]
  15. OXAZEPAM (OXAZEPAM) (OXAZEPAM) [Concomitant]

REACTIONS (1)
  - Blood creatine phosphokinase increased [None]
